FAERS Safety Report 5011936-5 (Version None)
Quarter: 2006Q2

REPORT INFORMATION
  Report Type: 
  Country: None (occurrence: None)
  Receive Date: 20060526
  Receipt Date: 20050920
  Transmission Date: 20061013
  Serious: Yes (Hospitalization)
  Sender: FDA-Public Use
  Company Number: JP-ROCHE-418022

PATIENT
  Age: 71 Year
  Sex: Female
  Weight: 54.1 kg

DRUGS (7)
  1. TOCILIZUMAB [Concomitant]
     Indication: RHEUMATOID ARTHRITIS
     Route: 041
     Dates: start: 20050218, end: 20050909
  2. TOCILIZUMAB [Concomitant]
     Route: 041
     Dates: start: 20051028, end: 20060405
  3. TOCILIZUMAB [Concomitant]
     Dosage: MRA012JP.
     Route: 041
     Dates: start: 20040213, end: 20050112
  4. DICLOFENAC SODIUM [Suspect]
     Indication: RHEUMATOID ARTHRITIS
     Dosage: STARTED BEFORE STARTED TAKING TOCILIZUMAB
     Dates: end: 20060421
  5. TEPRENONE [Suspect]
     Dosage: STARTED BEFORE STARTED TAKING TOCILIZUMAB
     Dates: end: 20060421
  6. INDOMETHACIN [Suspect]
     Indication: RHEUMATOID ARTHRITIS
     Dosage: OPTIMAL DOSE GIVEN, STARTED BEFORE STARTING TOCILIZUMAB, FORM REPORTED AS SHEET.
     Dates: end: 20060421
  7. FERROUS SULFATE TAB [Suspect]
     Indication: ANAEMIA PROPHYLAXIS
     Dates: start: 20051028, end: 20060421

REACTIONS (8)
  - ALANINE AMINOTRANSFERASE INCREASED [None]
  - APPENDICITIS [None]
  - ASPARTATE AMINOTRANSFERASE INCREASED [None]
  - C-REACTIVE PROTEIN INCREASED [None]
  - HEPATIC FUNCTION ABNORMAL [None]
  - HYPOXIA [None]
  - PLATELET COUNT DECREASED [None]
  - SEPTIC SHOCK [None]
